FAERS Safety Report 5096288-7 (Version None)
Quarter: 2006Q3

REPORT INFORMATION
  Report Type: 
  Country: None (occurrence: None)
  Receive Date: 20060831
  Receipt Date: 20060817
  Transmission Date: 20061208
  Serious: Yes (Hospitalization)
  Sender: FDA-Public Use
  Company Number: 2006US001835

PATIENT
  Age: 61 Year
  Sex: Female

DRUGS (1)
  1. ADENOSCAN [Suspect]
     Indication: SCAN MYOCARDIAL PERFUSION
     Dosage: 140 RK/MIN, TOTAL DOSE, IV NOS
     Route: 042

REACTIONS (2)
  - ATRIAL FIBRILLATION [None]
  - ELECTROCARDIOGRAM ST SEGMENT DEPRESSION [None]
